FAERS Safety Report 25392783 (Version 2)
Quarter: 2025Q2

REPORT INFORMATION
  Report Type: Report from Study
  Country: US (occurrence: US)
  Receive Date: 20250603
  Receipt Date: 20250624
  Transmission Date: 20250716
  Serious: No
  Sender: MALLINCKRODT
  Company Number: US-MALLINCKRODT-MNK202503179

PATIENT
  Age: 46 Year
  Sex: Female

DRUGS (4)
  1. CORTICOTROPIN [Suspect]
     Active Substance: CORTICOTROPIN
     Indication: Rheumatoid arthritis
     Route: 058
     Dates: start: 20250519
  2. CORTICOTROPIN [Suspect]
     Active Substance: CORTICOTROPIN
  3. HUMIRA [Concomitant]
     Active Substance: ADALIMUMAB
  4. BENZALKONIUM CHLORIDE [Concomitant]
     Active Substance: BENZALKONIUM CHLORIDE

REACTIONS (7)
  - Injection site swelling [Unknown]
  - Injection site urticaria [Recovering/Resolving]
  - Rash [Unknown]
  - Fatigue [Unknown]
  - Injection site bruising [Unknown]
  - Weight increased [Unknown]
  - Injection site haemorrhage [Unknown]

NARRATIVE: CASE EVENT DATE: 20250501
